FAERS Safety Report 4860736-5 (Version None)
Quarter: 2005Q4

REPORT INFORMATION
  Report Type: 
  Country: None (occurrence: None)
  Receive Date: 20051220
  Receipt Date: 20051209
  Transmission Date: 20060501
  Serious: Yes (Disabling)
  Sender: FDA-Public Use
  Company Number: NL-JNJFOC-20051202237

PATIENT
  Age: 60 Year
  Sex: Female

DRUGS (22)
  1. REMICADE [Suspect]
     Indication: RHEUMATOID ARTHRITIS
     Dosage: 5 INFUSIONS
     Route: 042
  2. BUDESONIDE [Suspect]
  3. PREDNISON [Suspect]
  4. DEPO-MEDROL [Suspect]
     Indication: ARTHRITIS
  5. IMURAN [Concomitant]
  6. SALOFALK ZETPIL [Concomitant]
  7. CELEBREX [Concomitant]
  8. OMEPRAZOLE [Concomitant]
  9. CACIT [Concomitant]
  10. CACIT [Concomitant]
  11. FOSAMAX [Concomitant]
  12. DURATEARS [Concomitant]
  13. DURATEARS [Concomitant]
  14. DURATEARS [Concomitant]
  15. DURATEARS [Concomitant]
  16. DURATEARS [Concomitant]
  17. DURATEARS [Concomitant]
  18. DURATEARS [Concomitant]
  19. DURATEARS [Concomitant]
  20. DURATEARS [Concomitant]
  21. DURATEARS [Concomitant]
  22. PENTASA [Concomitant]

REACTIONS (3)
  - CATARACT [None]
  - MACULAR DEGENERATION [None]
  - VITREOUS DETACHMENT [None]
